FAERS Safety Report 5255969-2 (Version None)
Quarter: 2007Q1

REPORT INFORMATION
  Report Type: 
  Country: None (occurrence: None)
  Receive Date: 20070306
  Receipt Date: 20070221
  Transmission Date: 20070707
  Serious: Yes (Other)
  Sender: FDA-Public Use
  Company Number: US-ELI_LILLY_AND_COMPANY-US200701000106

PATIENT
  Age: 65 Year
  Sex: Female
  Weight: 61.224 kg

DRUGS (2)
  1. FORTEO [Suspect]
     Indication: OSTEOPOROSIS
     Dosage: 20 UG, DAILY (1/D)
     Dates: start: 20050222
  2. NEXIUM [Concomitant]
     Indication: DYSPEPSIA

REACTIONS (4)
  - CORNEAL ABRASION [None]
  - DRY EYE [None]
  - DRY SKIN [None]
  - EYELID FUNCTION DISORDER [None]
